FAERS Safety Report 8784117 (Version 1)
Quarter: 2012Q4

REPORT INFORMATION
  Report Type: Report from Study
  Country: US (occurrence: US)
  Receive Date: 20120913
  Receipt Date: 20120913
  Transmission Date: 20130627
  Serious: No
  Sender: FDA-Public Use
  Company Number: US-VERTEX PHARMACEUTICAL INC.-AE-2012-008988

PATIENT
  Age: 61 Year
  Sex: Male
  Weight: 84.91 kg

DRUGS (4)
  1. INCIVEK [Suspect]
     Indication: HEPATITIS C
     Route: 048
  2. RIBASPHERE [Concomitant]
     Indication: HEPATITIS C
  3. PEGASYS [Concomitant]
     Indication: HEPATITIS C
  4. GLYBURIDE [Concomitant]

REACTIONS (2)
  - Epistaxis [Unknown]
  - Fatigue [Unknown]
